FAERS Safety Report 18533391 (Version 1)
Quarter: 2020Q4

REPORT INFORMATION
  Report Type: Spontaneous
  Country: US (occurrence: US)
  Receive Date: 20201123
  Receipt Date: 20201123
  Transmission Date: 20210114
  Serious: No
  Sender: FDA-Public Use
  Company Number: US-BIOVITRUM-2020US6699

PATIENT
  Sex: Female
  Weight: 3.17 kg

DRUGS (12)
  1. SYNAGIS [Suspect]
     Active Substance: PALIVIZUMAB
     Indication: FAILURE TO THRIVE
  2. SYNAGIS [Suspect]
     Active Substance: PALIVIZUMAB
     Indication: PREMATURE BABY
  3. SYNAGIS [Suspect]
     Active Substance: PALIVIZUMAB
     Indication: PREMATURE BABY
  4. SYNAGIS [Suspect]
     Active Substance: PALIVIZUMAB
     Indication: IRON DEFICIENCY ANAEMIA
  5. SYNAGIS [Suspect]
     Active Substance: PALIVIZUMAB
     Indication: BRONCHOPULMONARY DYSPLASIA
     Route: 030
     Dates: start: 20200924
  6. SYNAGIS [Suspect]
     Active Substance: PALIVIZUMAB
     Indication: PREMATURE BABY
  7. TIMOLOL MALEATE. [Concomitant]
     Active Substance: TIMOLOL MALEATE
  8. SYNAGIS [Suspect]
     Active Substance: PALIVIZUMAB
     Indication: METABOLIC DISORDER
  9. SYNAGIS [Suspect]
     Active Substance: PALIVIZUMAB
     Indication: LOW BIRTH WEIGHT BABY
  10. SYNAGIS [Suspect]
     Active Substance: PALIVIZUMAB
     Indication: HAEMANGIOMA
  11. SYNAGIS [Suspect]
     Active Substance: PALIVIZUMAB
     Indication: BLOOD OSMOLARITY DECREASED
  12. PEPCID [Concomitant]
     Active Substance: FAMOTIDINE

REACTIONS (2)
  - Off label use [Unknown]
  - Haemangioma [Unknown]
